FAERS Safety Report 19424043 (Version 1)
Quarter: 2021Q2

REPORT INFORMATION
  Report Type: Spontaneous
  Country: US (occurrence: US)
  Receive Date: 20210616
  Receipt Date: 20210616
  Transmission Date: 20210717
  Serious: Yes (Death)
  Sender: FDA-Public Use
  Company Number: US-PFIZER INC-2021651048

PATIENT
  Age: 71 Year
  Sex: Male
  Weight: 54.43 kg

DRUGS (1)
  1. IBRANCE [Suspect]
     Active Substance: PALBOCICLIB
     Indication: PLEOMORPHIC LIPOSARCOMA
     Dosage: UNK, CYCLIC(DAILY FOR THREE WEEKS, AND OFF A WEEK.)
     Dates: start: 202102

REACTIONS (2)
  - Completed suicide [Fatal]
  - Off label use [Unknown]

NARRATIVE: CASE EVENT DATE: 20210318
